FAERS Safety Report 22390915 (Version 1)
Quarter: 2023Q2

REPORT INFORMATION
  Report Type: Spontaneous
  Country: NL (occurrence: NL)
  Receive Date: 20230601
  Receipt Date: 20230601
  Transmission Date: 20230722
  Serious: Yes (Other)
  Sender: FDA-Public Use
  Company Number: None

PATIENT
  Sex: Male
  Weight: 90 kg

DRUGS (1)
  1. METOPROLOL [Suspect]
     Active Substance: METOPROLOL
     Indication: Hypertension
     Dosage: 50 MILLIGRAM DAILY; 1 X PER DAY 1 PIECE, METOPROLOL TABLET   50MG / BRAND NAME NOT SPECIFIED
     Route: 065
     Dates: start: 20230406

REACTIONS (1)
  - Erectile dysfunction [Unknown]
